FAERS Safety Report 21849879 (Version 6)
Quarter: 2023Q2

REPORT INFORMATION
  Report Type: Spontaneous
  Country: DE (occurrence: DE)
  Receive Date: 20230111
  Receipt Date: 20230601
  Transmission Date: 20230722
  Serious: Yes (Life-Threatening, Hospitalization, Other)
  Sender: FDA-Public Use
  Company Number: DE-ROCHE-3252038

PATIENT
  Age: 68 Year
  Sex: Female

DRUGS (25)
  1. RITUXIMAB [Suspect]
     Active Substance: RITUXIMAB
     Indication: Diffuse large B-cell lymphoma
     Dosage: R-BENDAMUSTIN, 1ST TIME
     Route: 042
     Dates: start: 20181203, end: 20200218
  2. RITUXIMAB [Suspect]
     Active Substance: RITUXIMAB
     Indication: Follicular lymphoma
     Dosage: R-CHOP, 2ND LINE
     Route: 042
     Dates: start: 202007, end: 202012
  3. RITUXIMAB [Suspect]
     Active Substance: RITUXIMAB
     Dosage: R-DHAP, 3RD LINE
     Route: 042
     Dates: start: 20210111, end: 20210228
  4. RITUXIMAB [Suspect]
     Active Substance: RITUXIMAB
     Dosage: R-POLATUZUMAB-BENDAMUSTIN, 5TH LINE
     Route: 042
     Dates: start: 202207, end: 202210
  5. RITUXIMAB [Suspect]
     Active Substance: RITUXIMAB
     Dosage: 100 MG
     Route: 042
     Dates: start: 20150211
  6. RITUXIMAB [Suspect]
     Active Substance: RITUXIMAB
     Dosage: 200 MG
     Route: 042
     Dates: start: 20150212
  7. RITUXIMAB [Suspect]
     Active Substance: RITUXIMAB
     Dosage: 300 MG
     Route: 042
     Dates: start: 20150213
  8. CYCLOPHOSPHAMIDE\DOXORUBICIN\PREDNISONE\VINCRISTINE [Suspect]
     Active Substance: CYCLOPHOSPHAMIDE\DOXORUBICIN\PREDNISONE\VINCRISTINE
     Indication: Diffuse large B-cell lymphoma
     Dosage: R-CHOP, 2ND LINE
     Route: 065
     Dates: start: 202007, end: 202012
  9. POLATUZUMAB VEDOTIN [Suspect]
     Active Substance: POLATUZUMAB VEDOTIN
     Indication: Diffuse large B-cell lymphoma
     Dosage: R-POLATUZUMAB-BENDAMUSTIN, 5TH LINE
     Route: 065
     Dates: start: 202207, end: 202210
  10. BENDAMUSTINE [Suspect]
     Active Substance: BENDAMUSTINE
     Indication: Diffuse large B-cell lymphoma
     Dosage: R-BENDAMUSTIN, 1ST LINE
     Route: 065
     Dates: start: 20181203, end: 20200218
  11. BENDAMUSTINE [Suspect]
     Active Substance: BENDAMUSTINE
     Indication: Follicular lymphoma
     Dosage: R-POLATUZUMAB-BENDAMUSTIN, 5TH LINE
     Route: 065
     Dates: start: 202207, end: 202210
  12. BENDAMUSTINE [Suspect]
     Active Substance: BENDAMUSTINE
     Dosage: 140 MG
     Dates: start: 20150214
  13. BENDAMUSTINE [Suspect]
     Active Substance: BENDAMUSTINE
     Dosage: 140 MG
     Dates: start: 20150215
  14. CISPLATIN\CYTARABINE\DEXAMETHASONE [Suspect]
     Active Substance: CISPLATIN\CYTARABINE\DEXAMETHASONE
     Indication: Diffuse large B-cell lymphoma
     Dosage: R-DHAP, 3RD LINE
     Route: 065
     Dates: start: 20210111, end: 20210228
  15. CISPLATIN [Suspect]
     Active Substance: CISPLATIN
     Dosage: UNK
     Dates: start: 202101
  16. PANTOPRAZOLE [Concomitant]
     Active Substance: PANTOPRAZOLE
     Dosage: 40 MG
  17. ACYCLOVIR [Concomitant]
     Active Substance: ACYCLOVIR
     Dosage: UNK
  18. ALBUTEROL [Concomitant]
     Active Substance: ALBUTEROL
     Dosage: 1.25/0 0.25
  19. EMSER [EMSER SALT] [Concomitant]
     Dosage: UNK
  20. PANCREATIN [Concomitant]
     Active Substance: PANCRELIPASE
     Dosage: 10000 IU
  21. SULFAMETHOXAZOLE\TRIMETHOPRIM [Concomitant]
     Active Substance: SULFAMETHOXAZOLE\TRIMETHOPRIM
     Dosage: UNK
  22. TINZAPARIN SODIUM [Concomitant]
     Active Substance: TINZAPARIN SODIUM
     Dosage: 3.500 ANTI-XA I.E./0,35ML
  23. SODIUM BICARBONATE [Concomitant]
     Active Substance: SODIUM BICARBONATE
     Dosage: UNK
  24. LENALIDOMIDE [Concomitant]
     Active Substance: LENALIDOMIDE
     Dosage: 5 MG
  25. RESONIUM [Concomitant]
     Active Substance: SODIUM POLYSTYRENE SULFONATE
     Dosage: UNK

REACTIONS (18)
  - Mechanical ileus [Recovered/Resolved]
  - Ileus [Recovered/Resolved]
  - Renal failure [Recovering/Resolving]
  - Urinary retention [Unknown]
  - Pancreatitis chronic [Unknown]
  - Lymphoma [Not Recovered/Not Resolved]
  - Cytokine release syndrome [Unknown]
  - Urinary tract obstruction [Unknown]
  - Neutropenia [Recovering/Resolving]
  - Hyperhidrosis [Unknown]
  - Pyrexia [Unknown]
  - Abdominal pain [Unknown]
  - Chest discomfort [Unknown]
  - Haematotoxicity [Unknown]
  - Hypertension [Not Recovered/Not Resolved]
  - Fall [Unknown]
  - Constipation [Unknown]
  - Muscular weakness [Unknown]

NARRATIVE: CASE EVENT DATE: 20170401
